FAERS Safety Report 12526151 (Version 4)
Quarter: 2017Q4

REPORT INFORMATION
  Report Type: Spontaneous
  Country: US (occurrence: US)
  Receive Date: 20160705
  Receipt Date: 20171027
  Transmission Date: 20180320
  Serious: No
  Sender: FDA-Public Use
  Company Number: US-PFIZER INC-2016305362

PATIENT
  Age: 63 Year
  Sex: Male
  Weight: 90 kg

DRUGS (36)
  1. FENTANYL. [Concomitant]
     Active Substance: FENTANYL
     Indication: NECK PAIN
     Dosage: 25 UG, UNK (PER HOUR, CHANGED EVERY 3 DAYS)
     Route: 062
     Dates: start: 201503
  2. ACETAMINOPHEN. [Concomitant]
     Active Substance: ACETAMINOPHEN
     Indication: NERVE INJURY
  3. BACLOFEN. [Concomitant]
     Active Substance: BACLOFEN
     Indication: PAIN
  4. BIOTIN [Concomitant]
     Active Substance: BIOTIN
     Indication: HAIR COLOUR CHANGES
     Dosage: 10000 UG, 1X/DAY, 5000 MCG PILL 2 IN THE MORNING
     Route: 048
     Dates: start: 2016
  5. KEPPRA [Concomitant]
     Active Substance: LEVETIRACETAM
     Dosage: 750 MG, 2X/DAY
  6. VITAMIN D /00107901/ [Concomitant]
     Active Substance: ERGOCALCIFEROL
     Indication: VITAMIN D DECREASED
     Dosage: 3000 IU, 1X/DAY, (1000 IU, 3 TABLET FIRST THING IN THE MORNING)
     Route: 048
  7. ASPIRIN /00002701/ [Concomitant]
     Active Substance: ASPIRIN
     Indication: CARDIAC DISORDER
     Dosage: 81 MG, 1X/DAY, AT NIGHT
     Route: 048
  8. LYRICA [Suspect]
     Active Substance: PREGABALIN
     Dosage: 300 MG, DAILY (75 MG IN THE MORNING, 75MG LATE AFTERNOON, 150MG AT BEDTIME )
  9. AMLODIPINE BESILATE [Concomitant]
     Active Substance: AMLODIPINE BESYLATE
     Indication: CARDIAC DISORDER
     Dosage: 10 MG, DAILY (TAKES HALF OF THE PILL, 5MG ONCE IN THE MORNING)
  10. BACLOFEN. [Concomitant]
     Active Substance: BACLOFEN
     Indication: MUSCLE RELAXANT THERAPY
     Dosage: 10 MG, 2X/DAY
     Route: 048
  11. DIAZEPAM. [Concomitant]
     Active Substance: DIAZEPAM
     Indication: HEADACHE
     Dosage: 7.5 MG, DAILY, (2.5 MG IN MORNING, 5 MG AT 6 PM OR 10 PM BUT NOT BOTH 6PM AND 10PM)
  12. FENTANYL. [Concomitant]
     Active Substance: FENTANYL
     Indication: HEADACHE
     Dosage: 50 UG, UNK
     Route: 062
  13. BENZTROPINE MESYLATE. [Concomitant]
     Active Substance: BENZTROPINE MESYLATE
     Indication: MUSCLE SPASMS
     Dosage: 0.5 MG, 2X/DAY IN THE MORNING AND AROUND 6 PM
     Route: 048
  14. BIOTIN [Concomitant]
     Active Substance: BIOTIN
     Indication: VITAMIN B12 DECREASED
  15. IBUPROFEN. [Concomitant]
     Active Substance: IBUPROFEN
     Indication: PAIN
     Dosage: 400 MG, AS NEEDED, (200 MG 2 TABLETS)
     Route: 048
     Dates: start: 201503
  16. KEPPRA [Concomitant]
     Active Substance: LEVETIRACETAM
     Indication: SEIZURE
     Dosage: 1500 MG, 2X/DAY, (TWO 750 MG TABLET, 6 IN THE MORNING AND 6 AT NIGHT)
     Route: 048
  17. METFORMIN HCL [Concomitant]
     Active Substance: METFORMIN HYDROCHLORIDE
     Indication: DIABETES MELLITUS
     Dosage: 500 MG, 2X/DAY, (1000MG PILL, 1/2 AT 6 AM AND 1/2 AT 6PM)
     Route: 048
  18. PRAVASTATIN. [Concomitant]
     Active Substance: PRAVASTATIN
     Indication: BLOOD CHOLESTEROL ABNORMAL
     Dosage: 80 MG, 1X/DAY, AT 6PM
     Route: 048
  19. PRAVASTATIN. [Concomitant]
     Active Substance: PRAVASTATIN
     Indication: BLOOD CHOLESTEROL DECREASED
  20. ZOLPIDEM TARTRATE. [Concomitant]
     Active Substance: ZOLPIDEM TARTRATE
     Indication: INSOMNIA
     Dosage: 5 MG, 1X/DAY, PRIOR TO BEDTIME, NIGHTLY
     Route: 048
  21. VITAMIN B-COMPLEX [Concomitant]
     Active Substance: DEXPANTHENOL\NIACINAMIDE\PYRIDOXINE HYDROCHLORIDE\RIBOFLAVIN 5^-PHOSPHATE SODIUM\THIAMINE HYDROCHLORIDE
     Dosage: UNK
  22. FENTANYL. [Concomitant]
     Active Substance: FENTANYL
     Indication: NERVE INJURY
  23. MOBIC [Concomitant]
     Active Substance: MELOXICAM
     Indication: PAIN
     Dosage: 15 MG, 1X/DAY, AT 2PM WITH FOOD
     Route: 048
  24. OSTEO BI-FLEX /01431201/ [Concomitant]
     Indication: ARTHRALGIA
     Dosage: 3 DF, DAILY, [GLUCOSAMINE HYDROCHLORIDE 1500 MG]/[ GLUCOSAMINE HYDROCHLORIDE 1250 MG]
     Dates: start: 2016
  25. SILICA [Concomitant]
     Active Substance: SILICON DIOXIDE
     Dosage: UNK
  26. ACETAMINOPHEN. [Concomitant]
     Active Substance: ACETAMINOPHEN
     Indication: HEADACHE
     Dosage: 500 MG, AS NEEDED, NOT TO EXCEED 4 GRAMS PER DAY
     Route: 048
     Dates: start: 201503
  27. HYDROCODONE BITARTRATE AND ACETAMINOPHEN [Concomitant]
     Active Substance: ACETAMINOPHEN\HYDROCODONE BITARTRATE
     Indication: NECK PAIN
     Dosage: UNK UNK, 1X/DAY [HYDROCODONE BITARTRATE 10 MG]/[ PARACETAMOL-325 MG]
     Dates: start: 201503
  28. LYRICA [Suspect]
     Active Substance: PREGABALIN
     Dosage: 300 MG, DAILY, (75 MG ONE AT 6 AM, ONE AT 2 PM, AND THEN 2 AT 10 PM)
  29. HYDROCODONE BITARTRATE AND ACETAMINOPHEN [Concomitant]
     Active Substance: ACETAMINOPHEN\HYDROCODONE BITARTRATE
     Indication: HEADACHE
     Dosage: 1 DF, 1X/DAY, NIGHTLY AT 10 PM, [HYDROCODONE BITARTRATE 10 MG]/[ PARACETAMOL 325 MG]
  30. HYDROCODONE BITARTRATE AND ACETAMINOPHEN [Concomitant]
     Active Substance: ACETAMINOPHEN\HYDROCODONE BITARTRATE
     Indication: NERVE INJURY
  31. ZOLPIDEM TARTRATE. [Concomitant]
     Active Substance: ZOLPIDEM TARTRATE
     Dosage: 5 MG, 1X/DAY (AT NIGHT AS NEEDED)
     Dates: start: 201503
  32. NAPROXEN. [Concomitant]
     Active Substance: NAPROXEN
     Indication: PAIN
     Dosage: 500 MG, 2X/DAY (500MG, TAKES 1 IN THE MORNING AND 1 LATE EVENING)
     Dates: start: 2016
  33. LYRICA [Suspect]
     Active Substance: PREGABALIN
     Indication: NERVE INJURY
     Dosage: UNK
     Dates: start: 1999
  34. AMLODIPINE BESILATE [Concomitant]
     Active Substance: AMLODIPINE BESYLATE
     Indication: BLOOD PRESSURE ABNORMAL
     Dosage: 1/2 A 10 MG TABLET IN THE AM
  35. IBUPROFEN. [Concomitant]
     Active Substance: IBUPROFEN
     Indication: NERVE INJURY
  36. METFORMIN HCL [Concomitant]
     Active Substance: METFORMIN HYDROCHLORIDE
     Indication: TYPE 2 DIABETES MELLITUS
     Dosage: UNK UNK, 3X/DAY (1000MG, 1/2 TABLET THREE TIMES A DAY)

REACTIONS (8)
  - Malabsorption [Not Recovered/Not Resolved]
  - Drug ineffective [Unknown]
  - Product physical issue [Unknown]
  - Product taste abnormal [Unknown]
  - Memory impairment [Unknown]
  - Underdose [Unknown]
  - Medication residue present [Not Recovered/Not Resolved]
  - Intentional product misuse [Unknown]

NARRATIVE: CASE EVENT DATE: 201503
